FAERS Safety Report 10413541 (Version 2)
Quarter: 2014Q3

REPORT INFORMATION
  Report Type: Spontaneous
  Country: CO (occurrence: CO)
  Receive Date: 20140827
  Receipt Date: 20140902
  Transmission Date: 20150326
  Serious: Yes (Other)
  Sender: FDA-Public Use
  Company Number: CO-PFIZER INC-2014235485

PATIENT
  Sex: Male

DRUGS (2)
  1. EPAMIN [Suspect]
     Active Substance: PHENYTOIN SODIUM
     Indication: CONVULSION
     Dosage: UNK
     Route: 048
     Dates: start: 1988
  2. EPAMIN [Suspect]
     Active Substance: PHENYTOIN SODIUM
     Indication: CONVULSION
     Dosage: UNK
     Route: 048

REACTIONS (7)
  - Blindness [Not Recovered/Not Resolved]
  - Nausea [Not Recovered/Not Resolved]
  - Tremor [Not Recovered/Not Resolved]
  - Hypoaesthesia [Not Recovered/Not Resolved]
  - Headache [Not Recovered/Not Resolved]
  - Depressed mood [Not Recovered/Not Resolved]
  - Fatigue [Not Recovered/Not Resolved]
